FAERS Safety Report 6822155-1 (Version None)
Quarter: 2010Q3

REPORT INFORMATION
  Report Type: 
  Country: None (occurrence: None)
  Receive Date: 20100708
  Receipt Date: 20100629
  Transmission Date: 20110219
  Serious: Yes (Other)
  Sender: FDA-Public Use
  Company Number: US-JNJFOC-20100700471

PATIENT
  Sex: Female
  Weight: 68.95 kg

DRUGS (11)
  1. FENTANYL [Suspect]
     Indication: OSTEITIS DEFORMANS
     Dosage: NDC#: 0781-7242-55
     Route: 062
  2. FENTANYL [Suspect]
     Route: 062
  3. FENTANYL [Suspect]
     Route: 062
  4. CARDIZEM [Suspect]
     Indication: HEART RATE IRREGULAR
     Route: 065
  5. CALCIUM AND VITAMIN D [Concomitant]
     Indication: VITAMIN SUPPLEMENTATION
     Route: 048
  6. CALCIUM AND VITAMIN D [Concomitant]
     Indication: MINERAL SUPPLEMENTATION
     Route: 048
  7. LISINOPRIL [Concomitant]
     Indication: HYPERTENSION
     Route: 048
  8. NEXIUM [Concomitant]
     Indication: GASTROOESOPHAGEAL REFLUX DISEASE
     Route: 048
  9. NEXIUM [Concomitant]
     Route: 048
  10. SPIRIVA [Concomitant]
     Indication: CHRONIC OBSTRUCTIVE PULMONARY DISEASE
     Dosage: 1 PUFF/EVERY DAY
     Route: 055
  11. ADVAIR DISKUS 100/50 [Concomitant]
     Indication: CHRONIC OBSTRUCTIVE PULMONARY DISEASE
     Dosage: 1 PUFF/2 TIMES/EVERY DAY
     Route: 055

REACTIONS (9)
  - ANXIETY [None]
  - BRADYCARDIA [None]
  - DRUG EFFECT INCREASED [None]
  - DYSPNOEA [None]
  - HYPERTENSION [None]
  - INADEQUATE ANALGESIA [None]
  - NERVOUSNESS [None]
  - RENAL PAIN [None]
  - RESPIRATORY DISTRESS [None]
